FAERS Safety Report 13058971 (Version 1)
Quarter: 2016Q4

REPORT INFORMATION
  Report Type: Spontaneous
  Country: US (occurrence: US)
  Receive Date: 20161223
  Receipt Date: 20161223
  Transmission Date: 20170207
  Serious: No
  Sender: FDA-Public Use
  Company Number: US-GLAXOSMITHKLINE-US2016189417

PATIENT
  Age: 68 Year
  Sex: Female

DRUGS (2)
  1. VOLTAREN [Suspect]
     Active Substance: DICLOFENAC SODIUM
     Indication: ARTHRALGIA
     Dosage: UNK
     Dates: start: 2016
  2. VOLTAREN [Suspect]
     Active Substance: DICLOFENAC SODIUM
     Indication: MYALGIA

REACTIONS (6)
  - Therapeutic response unexpected [Unknown]
  - Myalgia [Not Recovered/Not Resolved]
  - Off label use [Unknown]
  - Condition aggravated [Not Recovered/Not Resolved]
  - Drug administered at inappropriate site [Unknown]
  - Circumstance or information capable of leading to medication error [Unknown]

NARRATIVE: CASE EVENT DATE: 201611
